FAERS Safety Report 15602638 (Version 1)
Quarter: 2018Q4

REPORT INFORMATION
  Report Type: Spontaneous
  Country: US (occurrence: US)
  Receive Date: 20181106
  Receipt Date: 20181106
  Transmission Date: 20190205
  Serious: No
  Sender: FDA-Public Use
  Company Number: None

PATIENT
  Age: 72 Year
  Sex: Male

DRUGS (1)
  1. ZYTIGA TAB 500MG [Suspect]
     Active Substance: ABIRATERONE ACETATE
     Dates: start: 20181001

REACTIONS (5)
  - Dry mouth [None]
  - Fatigue [None]
  - Dysgeusia [None]
  - Poor quality sleep [None]
  - Incorrect dose administered [None]

NARRATIVE: CASE EVENT DATE: 20181002
